FAERS Safety Report 9090076 (Version 1)
Quarter: 2013Q1

REPORT INFORMATION
  Report Type: Spontaneous
  Country: CA (occurrence: CA)
  Receive Date: 20130131
  Receipt Date: 20130131
  Transmission Date: 20140127
  Serious: Yes (Hospitalization)
  Sender: FDA-Public Use
  Company Number: CA-B.I. PHARMACEUTICALS,INC./RIDGEFIELD-2013-CN-00143CN

PATIENT
  Age: 67 Year
  Sex: Male

DRUGS (1)
  1. PRADAX [Suspect]
     Dates: start: 201111

REACTIONS (1)
  - Myocardial infarction [Recovered/Resolved]
